FAERS Safety Report 6634430-4 (Version None)
Quarter: 2010Q1

REPORT INFORMATION
  Report Type: 
  Country: None (occurrence: None)
  Receive Date: 20100315
  Receipt Date: 20100302
  Transmission Date: 20100710
  Serious: Yes (Other)
  Sender: FDA-Public Use
  Company Number: US-ROCHE-688677

PATIENT
  Age: 55 Year
  Sex: Female
  Weight: 68 kg

DRUGS (3)
  1. HERCEPTIN [Suspect]
     Indication: BREAST CANCER
     Route: 042
     Dates: start: 20091228
  2. FEMARA [Concomitant]
     Indication: BREAST CANCER
     Route: 065
  3. MULTIVITAMIN NOS [Concomitant]

REACTIONS (5)
  - ANTI-THYROID ANTIBODY POSITIVE [None]
  - CHILLS [None]
  - FATIGUE [None]
  - HEADACHE [None]
  - ONYCHOCLASIS [None]
